FAERS Safety Report 10148779 (Version 2)
Quarter: 2014Q2

REPORT INFORMATION
  Report Type: Report from Study
  Country: US (occurrence: US)
  Receive Date: 20140502
  Receipt Date: 20140502
  Transmission Date: 20141212
  Serious: Yes (Death, Hospitalization, Other)
  Sender: FDA-Public Use
  Company Number: US-GILEAD-2014-0097414

PATIENT
  Age: 29 Year
  Sex: Male

DRUGS (12)
  1. AZTREONAM LYSINE [Suspect]
     Indication: CYSTIC FIBROSIS
     Dosage: 75 MG, UNK
     Route: 055
     Dates: start: 20121017, end: 20140201
  2. CREON [Concomitant]
  3. MOTRIN [Concomitant]
     Indication: HEADACHE
  4. PROPRANOLOL [Concomitant]
  5. ALBUTEROL                          /00139501/ [Concomitant]
     Indication: COUGH
  6. PULMOZYME [Concomitant]
  7. AQUADEKS                           /07679501/ [Concomitant]
  8. BACTRIM [Concomitant]
  9. HUMALOG [Concomitant]
  10. PREDNISONE [Concomitant]
  11. VICODIN [Concomitant]
  12. AZITHROMYCIN [Concomitant]

REACTIONS (4)
  - Respiratory failure [Fatal]
  - Influenza [Fatal]
  - Pneumonia [Unknown]
  - Dyspnoea [Unknown]
